FAERS Safety Report 14653641 (Version 1)
Quarter: 2018Q1

REPORT INFORMATION
  Report Type: Spontaneous
  Country: US (occurrence: US)
  Receive Date: 20180319
  Receipt Date: 20180319
  Transmission Date: 20180509
  Serious: No
  Sender: FDA-Public Use
  Company Number: US-AMGEN-USASP2018036026

PATIENT
  Age: 69 Year
  Sex: Female

DRUGS (3)
  1. ALBUTEROL. [Concomitant]
     Active Substance: ALBUTEROL
     Dosage: UNK
     Route: 065
  2. ENBREL [Suspect]
     Active Substance: ETANERCEPT
     Indication: RHEUMATOID ARTHRITIS
     Dosage: 50 MG, QWK
     Route: 065
  3. REMICADE [Concomitant]
     Active Substance: INFLIXIMAB
     Dosage: UNK
     Route: 065

REACTIONS (2)
  - Incorrect disposal of product [Unknown]
  - Wrong technique in product usage process [Unknown]
